FAERS Safety Report 5506597-2 (Version None)
Quarter: 2007Q4

REPORT INFORMATION
  Report Type: 
  Country: None (occurrence: None)
  Receive Date: 20071101
  Receipt Date: 20071023
  Transmission Date: 20080405
  Serious: Yes (Other)
  Sender: FDA-Public Use
  Company Number: CHPA2007US11157

PATIENT
  Age: 6 Year
  Sex: Female

DRUGS (1)
  1. TRIAMINIC COLD + ALLERGY ORANG (NCH) (CHLORPHENIRAMINE MALEATE, PSEUDO [Suspect]
     Dosage: ONCE/SINGLE, ORAL
     Route: 048
     Dates: start: 20071022, end: 20071022

REACTIONS (3)
  - ACCIDENTAL DRUG INTAKE BY CHILD [None]
  - PHARMACEUTICAL PRODUCT COMPLAINT [None]
  - VOMITING [None]
